FAERS Safety Report 23822995 (Version 3)
Quarter: 2024Q3

REPORT INFORMATION
  Report Type: Spontaneous
  Country: HR (occurrence: HR)
  Receive Date: 20240506
  Receipt Date: 20240701
  Transmission Date: 20241017
  Serious: Yes (Life-Threatening, Hospitalization, Other)
  Sender: NOVARTIS
  Company Number: None

PATIENT
  Age: 49 Year
  Sex: Female

DRUGS (2)
  1. COSENTYX [Suspect]
     Active Substance: SECUKINUMAB
     Indication: Psoriatic arthropathy
     Dosage: 300 MG (300 MG S.C. (INDUKCIJSKI PROTOKOL), ZATIM 150 MG SVAKA 2 TJEDNA)
     Route: 058
     Dates: start: 20181001
  2. COSENTYX [Suspect]
     Active Substance: SECUKINUMAB
     Indication: Psoriasis
     Dosage: 150 MG, BIW (300 MG S.C. (INDUKCIJSKI PROTOKOL), ZATIM 150 MG SVAKA 2 TJEDNA)
     Route: 058
     Dates: end: 20191210

REACTIONS (1)
  - Invasive breast carcinoma [Recovered/Resolved with Sequelae]

NARRATIVE: CASE EVENT DATE: 20191025
